FAERS Safety Report 7647064-X (Version None)
Quarter: 2011Q3

REPORT INFORMATION
  Report Type: 
  Country: None (occurrence: None)
  Receive Date: 20110801
  Receipt Date: 20110729
  Transmission Date: 20111222
  Serious: Yes (Other)
  Sender: FDA-Public Use
  Company Number: US-PFIZER INC-2011173620

PATIENT
  Sex: Male
  Weight: 58.95 kg

DRUGS (10)
  1. FLUOXETINE [Concomitant]
     Indication: DEPRESSION
     Dosage: 20 MG, 4X/DAY
  2. PANTOPRAZOLE [Concomitant]
     Dosage: 40 MG, DAILY
  3. LEVOTHYROXINE [Concomitant]
     Dosage: UNK
  4. METHADONE [Concomitant]
     Indication: PAIN
     Dosage: 5 MG, 2X/DAY
  5. XANAX [Concomitant]
     Indication: ANXIETY
     Dosage: 1 MG, 4X/DAY
     Route: 048
  6. ACYCLOVIR [Concomitant]
     Dosage: 400 MG, 2X/DAY
  7. ONDANSETRON [Concomitant]
     Dosage: UNK
  8. ADVIL PM [Suspect]
     Indication: INSOMNIA
     Dosage: UNK
     Route: 048
  9. INDOMETHACIN [Concomitant]
     Dosage: UNK
  10. FENTANYL [Concomitant]
     Indication: DEPRESSION
     Dosage: 100 UG, EVERY THREE DAYS

REACTIONS (1)
  - HAEMORRHAGE [None]
